FAERS Safety Report 21724177 (Version 1)
Quarter: 2022Q4

REPORT INFORMATION
  Report Type: Spontaneous
  Country: FR (occurrence: FR)
  Receive Date: 20221213
  Receipt Date: 20221213
  Transmission Date: 20230113
  Serious: Yes (Death, Other)
  Sender: FDA-Public Use
  Company Number: FR-BAXTER-2022BAX026169

PATIENT
  Age: 67 Year
  Sex: Male

DRUGS (3)
  1. DEXAMETHASONE [Suspect]
     Active Substance: DEXAMETHASONE
     Indication: Product used for unknown indication
     Dosage: 20 MG/DOSE 4 DOSE(S)/WEEK 2 WEEK(S)/CYCLE; LINE NUMBER 1
     Route: 065
     Dates: end: 20180107
  2. BORTEZOMIB [Suspect]
     Active Substance: BORTEZOMIB
     Indication: Product used for unknown indication
     Dosage: 1.3 MG/M2/DOSE 2 DOSE(S)/WEEK 2 WEEK(S)/CYCLE; LINE NUMBER 1
     Route: 065
     Dates: end: 20180107
  3. CYCLOPHOSPHAMIDE [Suspect]
     Active Substance: CYCLOPHOSPHAMIDE
     Indication: Product used for unknown indication
     Dosage: 750 MG/M2/DOSE 1 DOSE(S)/WEEK 1 WEEK(S)/CYCLE; LINE NUMBER 1
     Route: 065
     Dates: end: 20180107

REACTIONS (1)
  - Septic shock [Fatal]
